FAERS Safety Report 20303447 (Version 1)
Quarter: 2022Q1

REPORT INFORMATION
  Report Type: Report from Study
  Country: AT (occurrence: AT)
  Receive Date: 20220106
  Receipt Date: 20220106
  Transmission Date: 20220423
  Serious: Yes (Death, Other)
  Sender: FDA-Public Use
  Company Number: AT-PFIZER INC-202200004257

PATIENT

DRUGS (2)
  1. HEPARIN SODIUM [Suspect]
     Active Substance: HEPARIN SODIUM
     Indication: Acute on chronic liver failure
     Dosage: UNK (PRERINSED WITH 5000-10000 IU OF UNFRACTIONATED HEPARIN)
  2. EPOPROSTENOL [Suspect]
     Active Substance: EPOPROSTENOL
     Indication: Acute on chronic liver failure
     Dosage: UNK (3-5 NG/KG/MIN)

REACTIONS (2)
  - Multiple organ dysfunction syndrome [Fatal]
  - Melaena [Unknown]
